FAERS Safety Report 4986356-X (Version None)
Quarter: 2006Q2

REPORT INFORMATION
  Report Type: 
  Country: None (occurrence: None)
  Receive Date: 20060428
  Receipt Date: 20060427
  Transmission Date: 20061013
  Serious: Yes (Hospitalization, Other)
  Sender: FDA-Public Use
  Company Number: US-GLAXOSMITHKLINE-A0603567A

PATIENT
  Age: 18 Year
  Sex: Female

DRUGS (3)
  1. ZOFRAN [Suspect]
     Indication: PROPHYLAXIS OF NAUSEA AND VOMITING
     Dosage: 8MG PER DAY
     Route: 048
     Dates: start: 20060425, end: 20060425
  2. BIRTH CONTROL [Concomitant]
  3. KEFLEX [Concomitant]

REACTIONS (3)
  - CONVULSION [None]
  - MUSCLE SPASMS [None]
  - SYNCOPE [None]
